FAERS Safety Report 6464504-2 (Version None)
Quarter: 2009Q4

REPORT INFORMATION
  Report Type: 
  Country: None (occurrence: None)
  Receive Date: 20091201
  Receipt Date: 20091119
  Transmission Date: 20100525
  Serious: Yes (Hospitalization, Other)
  Sender: FDA-Public Use
  Company Number: DE-PFIZER INC-2008152306

PATIENT
  Age: 32 Year
  Sex: Male
  Weight: 75 kg

DRUGS (11)
  1. LYRICA [Suspect]
     Dosage: 75 MG, UNK
     Route: 048
     Dates: start: 20080130, end: 20080204
  2. LYRICA [Suspect]
     Dosage: 75 MG, UNK
     Route: 048
     Dates: start: 20080210, end: 20080213
  3. KATADOLON [Concomitant]
     Dosage: 200 MG, 3X/DAY
     Route: 048
     Dates: start: 20080131, end: 20080204
  4. ACTRAPID HUMAN [Concomitant]
     Dosage: 6 IU, 1X/DAY
     Route: 058
     Dates: start: 20080130, end: 20080130
  5. ATOSIL [Concomitant]
     Dosage: 25 MG, 1X/DAY
     Route: 048
     Dates: start: 20080131, end: 20080202
  6. ENOXAPARIN SODIUM [Concomitant]
     Indication: THROMBOSIS PROPHYLAXIS
     Dosage: SINGLE DOSE DIFFERENT
     Route: 058
     Dates: start: 20080128
  7. IBUPROFEN TABLETS [Concomitant]
     Dosage: 400 MG, 1X/DAY
     Route: 048
     Dates: start: 20080129, end: 20080129
  8. KALIUM ^VERLA^ [Concomitant]
     Dosage: 2160 MG, 2X/DAY
     Route: 048
     Dates: start: 20080129, end: 20080129
  9. NOVAMINSULFON-RATIOPHARM [Concomitant]
     Dosage: 750 MG, 1X/DAY
     Route: 048
     Dates: start: 20080130, end: 20080130
  10. NOVAMINSULFON-RATIOPHARM [Concomitant]
     Dosage: 625 MG, 1X/DAY
     Route: 048
     Dates: start: 20080201, end: 20080201
  11. NOVAMINSULFON-RATIOPHARM [Concomitant]
     Dosage: 625 MG, 1X/DAY
     Route: 048
     Dates: start: 20080203, end: 20080203

REACTIONS (1)
  - HEPATITIS ACUTE [None]
